FAERS Safety Report 11993741 (Version 1)
Quarter: 2016Q1

REPORT INFORMATION
  Report Type: Spontaneous
  Country: US (occurrence: None)
  Receive Date: 20160202
  Receipt Date: 20160202
  Transmission Date: 20160526
  Serious: Yes (Hospitalization)
  Sender: FDA-Public Use
  Company Number: None

PATIENT
  Age: 58 Year
  Sex: Male
  Weight: 86.18 kg

DRUGS (18)
  1. LOPERAMIDE (IMODIUM) [Concomitant]
  2. PANTOPRAZOLE (PROTONIX) [Concomitant]
  3. IBUPROFEN (ADVIL, MOTRIN) [Concomitant]
  4. PREDNISONE (DELTASONE) [Concomitant]
  5. SENNA-DOCUSATE (SENNA PLUS) [Concomitant]
  6. MAGNESIUM CITRATE (CITRATE OF MAGNESIUM) [Concomitant]
  7. MAGNESIUM HYDROXIDE (MILK OF MAGNESIA) [Concomitant]
  8. CALCIUM CARBONATE/VITAMIN D3 (CALCIUM 600 + D3 PO) [Concomitant]
  9. MORPHINE (MS CONTIN) [Concomitant]
  10. PROCHLORPERAZINE (COMPAZINE) [Concomitant]
  11. METFORMIN (GLUCOPHAGE) [Concomitant]
  12. NORVASC [Concomitant]
     Active Substance: AMLODIPINE BESYLATE
  13. MAGNESIUM OXIDE. [Concomitant]
     Active Substance: MAGNESIUM OXIDE
  14. MEGESTROL (MEGACE) [Concomitant]
  15. BOOST GLUCOSE CONTROL [Concomitant]
  16. ZYTIGA [Suspect]
     Active Substance: ABIRATERONE ACETATE
     Indication: PROSTATE CANCER
     Route: 048
     Dates: start: 20150925
  17. CABAZITAXEL 25MG/M2 TEVA [Suspect]
     Active Substance: CABAZITAXEL
     Indication: PROSTATE CANCER
     Dosage: 25MG/M2  Q21DAYS  INTRAVENOUS
     Route: 042
     Dates: start: 20150925
  18. ROXICODONE [Concomitant]
     Active Substance: OXYCODONE HYDROCHLORIDE

REACTIONS (8)
  - Disease progression [None]
  - Metastases to bone [None]
  - Pain [None]
  - Pathological fracture [None]
  - Nerve root compression [None]
  - Lumbar spinal stenosis [None]
  - Paraesthesia [None]
  - Back pain [None]

NARRATIVE: CASE EVENT DATE: 20160115
